FAERS Safety Report 17699750 (Version 1)
Quarter: 2020Q2

REPORT INFORMATION
  Report Type: Spontaneous
  Country: GB (occurrence: GB)
  Receive Date: 20200423
  Receipt Date: 20200423
  Transmission Date: 20200714
  Serious: Yes (Other)
  Sender: FDA-Public Use
  Company Number: GB-VELOXIS PHARMACEUTICALS-2020VELGB-000356

PATIENT
  Sex: Male

DRUGS (3)
  1. KALYDECO [Interacting]
     Active Substance: IVACAFTOR
     Indication: CYSTIC FIBROSIS
     Dosage: UNK, FREQUENCY UNKNOWN
     Route: 048
  2. SYMKEVI [Interacting]
     Active Substance: IVACAFTOR\TEZACAFTOR
     Indication: CYSTIC FIBROSIS
     Dosage: 100 MG TEZACAFTOR/ 150 MG IVACAFTOR, FREQUENCY UNKNOWN
     Route: 048
  3. ENVARSUS XR [Suspect]
     Active Substance: TACROLIMUS
     Indication: LIVER TRANSPLANT
     Dosage: UNK
     Route: 065

REACTIONS (1)
  - Drug interaction [Unknown]
